FAERS Safety Report 17512616 (Version 2)
Quarter: 2020Q2

REPORT INFORMATION
  Report Type: Report from Study
  Country: FR (occurrence: FR)
  Receive Date: 20200306
  Receipt Date: 20200409
  Transmission Date: 20200713
  Serious: Yes (Death, Other)
  Sender: FDA-Public Use
  Company Number: FR-JAZZ-2020-FR-003268

PATIENT
  Age: 4 Year
  Sex: Female

DRUGS (1)
  1. DEFITELIO [Suspect]
     Active Substance: DEFIBROTIDE SODIUM
     Indication: VENOOCCLUSIVE DISEASE
     Dosage: UNKNOWN DOSE
     Dates: start: 20190617, end: 20190730

REACTIONS (3)
  - BK virus infection [Recovered/Resolved]
  - Disease progression [Fatal]
  - Clostridium difficile infection [Recovered/Resolved]

NARRATIVE: CASE EVENT DATE: 20190618
